FAERS Safety Report 18362055 (Version 4)
Quarter: 2021Q2

REPORT INFORMATION
  Report Type: Other
  Country: DE (occurrence: DE)
  Receive Date: 20201009
  Receipt Date: 20210629
  Transmission Date: 20210717
  Serious: Yes (Congenital Anomaly)
  Sender: FDA-Public Use
  Company Number: DE-ROCHE-2687920

PATIENT
  Age: 0 Day
  Sex: Male

DRUGS (1)
  1. OCRELIZUMAB. [Suspect]
     Active Substance: OCRELIZUMAB
     Indication: PRODUCT USED FOR UNKNOWN INDICATION
     Route: 065
     Dates: start: 20190925, end: 20190925

REACTIONS (2)
  - Foetal exposure during pregnancy [Unknown]
  - Kidney congestion [Recovered/Resolved]

NARRATIVE: CASE EVENT DATE: 20200822
